FAERS Safety Report 17027325 (Version 1)
Quarter: 2019Q4

REPORT INFORMATION
  Report Type: Spontaneous
  Country: DE (occurrence: DE)
  Receive Date: 20191113
  Receipt Date: 20191113
  Transmission Date: 20200122
  Serious: Yes (Hospitalization, Other)
  Sender: FDA-Public Use
  Company Number: DE-ASTRAZENECA-2019SF60585

PATIENT

DRUGS (13)
  1. PREDNISOLON [Concomitant]
     Active Substance: PREDNISOLONE
     Dosage: 5 (1-0-0)
     Dates: start: 201710
  2. THEOPHYLLINE [Concomitant]
     Active Substance: THEOPHYLLINE ANHYDROUS
     Dosage: 200 (1-0-1)
  3. CETIRIZIN [Concomitant]
     Active Substance: CETIRIZINE HYDROCHLORIDE
  4. BEROTEC [Concomitant]
     Active Substance: FENOTEROL HYDROBROMIDE
     Dosage: 200 (1-0-1)
  5. SPIOLTO [Concomitant]
     Active Substance: OLODATEROL HYDROCHLORIDE\TIOTROPIUM BROMIDE MONOHYDRATE
     Dosage: (2-0-0)
  6. PREDNISOLON [Concomitant]
     Active Substance: PREDNISOLONE
     Dosage: DAY 1 200 MG, DAY 2 100 MG, DAY 3 TO 5 50 MG
     Dates: start: 20190416
  7. SPIRIVA [Concomitant]
     Active Substance: TIOTROPIUM BROMIDE MONOHYDRATE
     Dosage: 2.5 (2-0-0),2.5 (2-0-0),
  8. BENRALIZUMAB. [Suspect]
     Active Substance: BENRALIZUMAB
     Indication: ASTHMA
     Dosage: 30.0MG UNKNOWN
     Route: 058
     Dates: start: 20190409
  9. DUORESP [Concomitant]
     Active Substance: BUDESONIDE\FORMOTEROL
     Dosage: 320/9 1-0-1
  10. MONTELUKAST [Concomitant]
     Active Substance: MONTELUKAST SODIUM
     Dosage: 10 (0-0-1),10 (0-0-1),
  11. BENRALIZUMAB. [Suspect]
     Active Substance: BENRALIZUMAB
     Indication: ASTHMA
     Dosage: 30.0MG UNKNOWN
     Route: 058
     Dates: start: 20180616
  12. FOSTER [Concomitant]
     Active Substance: BECLOMETHASONE\FORMOTEROL
     Dosage: REDUCED TO (2-0-2)
  13. FOSTER [Concomitant]
     Active Substance: BECLOMETHASONE\FORMOTEROL
     Dosage: (2-1-1-2-1),100/6 (2-1-1-2-1),

REACTIONS (13)
  - Dyspnoea [Unknown]
  - Eosinophilia [Unknown]
  - Asthma [Unknown]
  - Neurodermatitis [Unknown]
  - Rhonchi [Unknown]
  - Abdominal distension [Unknown]
  - Weaning failure [Unknown]
  - Dyspnoea exertional [Unknown]
  - Medication error [Unknown]
  - Pyrexia [Unknown]
  - Cough [Unknown]
  - C-reactive protein increased [Unknown]
  - Intentional product use issue [Unknown]
